FAERS Safety Report 15601155 (Version 3)
Quarter: 2018Q4

REPORT INFORMATION
  Report Type: Spontaneous
  Country: US (occurrence: US)
  Receive Date: 20181109
  Receipt Date: 20181204
  Transmission Date: 20190205
  Serious: Yes (Other)
  Sender: FDA-Public Use
  Company Number: US-BIOGEN-2018BI00656911

PATIENT
  Age: 38 Year
  Sex: Female

DRUGS (2)
  1. TYSABRI [Suspect]
     Active Substance: NATALIZUMAB
     Indication: MULTIPLE SCLEROSIS
     Route: 065
     Dates: start: 20070523, end: 20150526
  2. TYSABRI [Suspect]
     Active Substance: NATALIZUMAB
     Route: 065
     Dates: start: 20160204, end: 20180713

REACTIONS (9)
  - Gait disturbance [Unknown]
  - Musculoskeletal stiffness [Unknown]
  - Amnesia [Unknown]
  - Panic attack [Unknown]
  - Patella fracture [Unknown]
  - Seizure [Recovered/Resolved]
  - Joint swelling [Unknown]
  - Multiple sclerosis [Unknown]
  - Pain [Unknown]

NARRATIVE: CASE EVENT DATE: 20111231
